FAERS Safety Report 21870947 (Version 1)
Quarter: 2023Q1

REPORT INFORMATION
  Report Type: Spontaneous
  Country: US (occurrence: None)
  Receive Date: 20230114
  Receipt Date: 20230114
  Transmission Date: 20230418
  Serious: No
  Sender: FDA-Public Use
  Company Number: None

PATIENT
  Age: 48 Year
  Sex: Female
  Weight: 81 kg

DRUGS (3)
  1. PAXLOVID [Suspect]
     Active Substance: NIRMATRELVIR\RITONAVIR
     Indication: COVID-19
     Dosage: FREQUENCY : TWICE A DAY;?
     Route: 048
     Dates: start: 20230112, end: 20230113
  2. VICKS DAYQUIL [Concomitant]
     Active Substance: DEXTROMETHORPHAN HYDROBROMIDE\GUAIFENESIN
  3. TYLENOL [Concomitant]
     Active Substance: ACETAMINOPHEN

REACTIONS (9)
  - Urticaria [None]
  - Swelling face [None]
  - Lid sulcus deepened [None]
  - Pallor [None]
  - Dysphagia [None]
  - Heart rate decreased [None]
  - Dizziness [None]
  - Constipation [None]
  - Confusional state [None]

NARRATIVE: CASE EVENT DATE: 20230113
